FAERS Safety Report 11992299 (Version 1)
Quarter: 2016Q1

REPORT INFORMATION
  Report Type: Spontaneous
  Country: US (occurrence: None)
  Receive Date: 20160202
  Receipt Date: 20160202
  Transmission Date: 20160526
  Serious: Yes (Disabling)
  Sender: FDA-Public Use
  Company Number: None

PATIENT
  Age: 37 Year
  Sex: Female
  Weight: 140.62 kg

DRUGS (8)
  1. RISPERIDONE. [Suspect]
     Active Substance: RISPERIDONE
     Indication: PSYCHOTIC DISORDER
     Route: 048
     Dates: start: 20130901, end: 20160131
  2. MUSCLE RELAXANT [Concomitant]
     Active Substance: UNSPECIFIED INGREDIENT
  3. LISINOPRIL. [Concomitant]
     Active Substance: LISINOPRIL
  4. TAMAZEPAM [Concomitant]
     Active Substance: TEMAZEPAM
  5. CLONAZAPAM [Concomitant]
     Active Substance: CLONAZEPAM
  6. CENTRUM [Concomitant]
     Active Substance: VITAMINS
  7. PROVIGIL [Concomitant]
     Active Substance: MODAFINIL
  8. SERTRALINE [Concomitant]
     Active Substance: SERTRALINE HYDROCHLORIDE

REACTIONS (1)
  - Amnesia [None]

NARRATIVE: CASE EVENT DATE: 20160131
